FAERS Safety Report 16575248 (Version 2)
Quarter: 2019Q4

REPORT INFORMATION
  Report Type: Report from Study
  Country: US (occurrence: US)
  Receive Date: 20190715
  Receipt Date: 20191015
  Transmission Date: 20200122
  Serious: Yes (Other)
  Sender: FDA-Public Use
  Company Number: PHEH2019US029212

PATIENT
  Sex: Female

DRUGS (2)
  1. ENTRESTO [Suspect]
     Active Substance: SACUBITRIL\VALSARTAN
     Indication: CARDIAC FAILURE CONGESTIVE
     Dosage: 1 DF (SACUBITRIL 24 MG/ VALSARTAN 26 MG), UNK
     Route: 048
  2. ENTRESTO [Suspect]
     Active Substance: SACUBITRIL\VALSARTAN
     Dosage: 1 DF (SACUBITRIL 97 MG/ VALSARTAN 103 MG), UNK
     Route: 048

REACTIONS (5)
  - Choking [Recovering/Resolving]
  - Fluid retention [Recovering/Resolving]
  - Drug ineffective [Recovering/Resolving]
  - Lethargy [Recovering/Resolving]
  - Dyspnoea [Recovering/Resolving]
